FAERS Safety Report 9998365 (Version 3)
Quarter: 2014Q2

REPORT INFORMATION
  Report Type: Report from Study
  Country: US (occurrence: US)
  Receive Date: 20140312
  Receipt Date: 20140623
  Transmission Date: 20141212
  Serious: Yes (Death)
  Sender: FDA-Public Use
  Company Number: US-BIOGENIDEC-2014BI021725

PATIENT
  Age: 74 Year
  Sex: Female

DRUGS (12)
  1. AVONEX [Suspect]
     Indication: MULTIPLE SCLEROSIS
     Route: 030
     Dates: start: 20040402, end: 20090608
  2. AVONEX [Suspect]
     Indication: MULTIPLE SCLEROSIS
     Route: 030
     Dates: start: 20090827
  3. AMLODIPINE BESYLATE [Concomitant]
  4. GALANTAMINE HYDROBROMIDE ER [Concomitant]
  5. KEPPRA [Concomitant]
  6. LATANOPROST [Concomitant]
  7. LIPITOR [Concomitant]
  8. LISINOPRIL [Concomitant]
  9. METAPROTERENOL SULFATE [Concomitant]
  10. METFORMIN HCL ER [Concomitant]
  11. NAMENDA [Concomitant]
  12. QUETIAPINE FUMARATE [Concomitant]

REACTIONS (23)
  - Death [Fatal]
  - Respiratory arrest [Not Recovered/Not Resolved]
  - Sepsis [Unknown]
  - Infection [Unknown]
  - Thrombosis [Not Recovered/Not Resolved]
  - Apparent death [Recovered/Resolved]
  - Convulsion [Recovered/Resolved]
  - Oral discharge [Not Recovered/Not Resolved]
  - Agitation [Not Recovered/Not Resolved]
  - Disorientation [Not Recovered/Not Resolved]
  - Memory impairment [Not Recovered/Not Resolved]
  - Visual impairment [Not Recovered/Not Resolved]
  - Diabetes mellitus [Not Recovered/Not Resolved]
  - Blood cholesterol abnormal [Not Recovered/Not Resolved]
  - Dementia Alzheimer^s type [Not Recovered/Not Resolved]
  - Abasia [Not Recovered/Not Resolved]
  - Aphagia [Not Recovered/Not Resolved]
  - Speech disorder [Not Recovered/Not Resolved]
  - Dehydration [Not Recovered/Not Resolved]
  - Pneumonia [Not Recovered/Not Resolved]
  - Decreased appetite [Not Recovered/Not Resolved]
  - Fatigue [Not Recovered/Not Resolved]
  - Anaemia [Not Recovered/Not Resolved]
